FAERS Safety Report 6134226-6 (Version None)
Quarter: 2009Q1

REPORT INFORMATION
  Report Type: 
  Country: None (occurrence: None)
  Receive Date: 20090325
  Receipt Date: 20090308
  Transmission Date: 20090719
  Serious: Yes (Hospitalization)
  Sender: FDA-Public Use
  Company Number: 2007S1004449

PATIENT
  Age: 67 Year
  Sex: Female
  Weight: 82.1011 kg

DRUGS (18)
  1. PHOSPHOSODA FLAVOR NOT SPECIFIED [Suspect]
     Indication: COLONOSCOPY
     Dosage: 90 ML;TOTAL;PO
     Route: 048
     Dates: start: 20070124, end: 20070124
  2. PROCRIT [Concomitant]
  3. ARANESP [Concomitant]
  4. ADVIL [Concomitant]
  5. NOVOLOG [Concomitant]
  6. INSULIN [Concomitant]
  7. NEXIUM [Concomitant]
  8. METOPROLOL [Concomitant]
  9. LEVOTHYROXINE SODIUM [Concomitant]
  10. ENALAPRIL [Concomitant]
  11. OXYBUTYNIN CHLORIDE [Concomitant]
  12. PLAVIX [Concomitant]
  13. ZOLOFT [Concomitant]
  14. ZOCOR [Concomitant]
  15. MULTI-VITAMIN [Concomitant]
  16. ASPIRIN [Concomitant]
  17. ALPHA LIPOIC ACID [Concomitant]
  18. LOVASTATIN [Concomitant]

REACTIONS (14)
  - ANXIETY [None]
  - DEPRESSION [None]
  - DIALYSIS [None]
  - DISCOMFORT [None]
  - DYSPNOEA EXERTIONAL [None]
  - FATIGUE [None]
  - INFLUENZA LIKE ILLNESS [None]
  - MOBILITY DECREASED [None]
  - MUSCULAR WEAKNESS [None]
  - NEPHROGENIC ANAEMIA [None]
  - PAIN [None]
  - QUALITY OF LIFE DECREASED [None]
  - RENAL FAILURE ACUTE [None]
  - RENAL TUBULAR NECROSIS [None]
